FAERS Safety Report 9167554 (Version 2)
Quarter: 2013Q3

REPORT INFORMATION
  Report Type: Spontaneous
  Country: FR (occurrence: None)
  Receive Date: 20130304
  Receipt Date: 20130701
  Transmission Date: 20140515
  Serious: Yes (Life-Threatening, Hospitalization)
  Sender: FDA-Public Use
  Company Number: 2013-0358-SPO

PATIENT
  Age: 54 Year
  Sex: Female

DRUGS (10)
  1. OESTRODOSE [Suspect]
     Indication: PRODUCT USED FOR UNKNOWN INDICATION
  2. TENORMIN (ATENOLOL) (UNKNOWN) [Concomitant]
  3. ALDACTONE (SPIRONOLACTONE) (UNKNOWN) [Concomitant]
  4. LASILIX (FUROSEMIDE) (UNKNOWN) [Concomitant]
  5. PREVISCAN (PENTOXIFYLLINE) (UNKNOWN) [Concomitant]
  6. ANDROCUR(CYPROTERONE ACETATE) [Concomitant]
     Indication: ANDROGENETIC ALOPECIA
     Dates: start: 199210, end: 201006
  7. ANDROCUR(CYPROTERONE ACETATE) [Concomitant]
     Indication: ACNE
     Dates: start: 199210, end: 201006
  8. PROGYNOVA (ESTRADIOL) (UNKNOWN) [Concomitant]
     Indication: ANDROGENETIC ALOPECIA
     Route: 048
     Dates: start: 2001
  9. PROVAMES (ESTRADIOL) (UNKNOWN) [Concomitant]
     Route: 048
     Dates: start: 201108
  10. ANDROCUR [Suspect]
     Indication: ANDROGENETIC ALOPECIA
     Dosage: ORAL, 10/1992-06-2010.

REACTIONS (5)
  - Cor pulmonale chronic [None]
  - Dyspnoea [None]
  - Pulmonary arterial hypertension [None]
  - Blood pH increased [None]
  - Condition aggravated [None]
